FAERS Safety Report 8581776-9 (Version None)
Quarter: 2012Q3

REPORT INFORMATION
  Report Type: 
  Country: None (occurrence: None)
  Receive Date: 20120809
  Receipt Date: 20120806
  Transmission Date: 20120928
  Serious: Yes (Other)
  Sender: FDA-Public Use
  Company Number: PHHY2012AR041399

PATIENT
  Sex: Female

DRUGS (2)
  1. ONBREZ [Suspect]
     Indication: EMPHYSEMA
     Dosage: 150 UG, QD
     Dates: start: 20110601
  2. ANTIHYPERTENSIVES [Concomitant]

REACTIONS (5)
  - EYE HAEMORRHAGE [None]
  - DEPRESSED MOOD [None]
  - BLOOD PRESSURE INCREASED [None]
  - VISUAL IMPAIRMENT [None]
  - APHONIA [None]
